APPROVED DRUG PRODUCT: LARIN 24 FE
Active Ingredient: ETHINYL ESTRADIOL; NORETHINDRONE ACETATE
Strength: 0.02MG;1MG
Dosage Form/Route: TABLET;ORAL
Application: A202994 | Product #001 | TE Code: AB
Applicant: NOVAST LABORATORIES LTD
Approved: Feb 18, 2015 | RLD: No | RS: No | Type: RX